FAERS Safety Report 9451548 (Version 1)
Quarter: 2013Q3

REPORT INFORMATION
  Report Type: Spontaneous
  Country: US (occurrence: US)
  Receive Date: 20130811
  Receipt Date: 20130811
  Transmission Date: 20140515
  Serious: Yes (Hospitalization)
  Sender: FDA-Public Use
  Company Number: US-MYLANLABS-2013S1016977

PATIENT
  Age: 57 Year
  Sex: Female

DRUGS (15)
  1. ANASTROZOLE [Concomitant]
     Route: 065
  2. RANITIDINE [Concomitant]
     Indication: GASTROOESOPHAGEAL REFLUX DISEASE
     Route: 065
  3. LEVOCETIRIZINE [Concomitant]
     Route: 065
  4. DOXAZOSIN [Concomitant]
     Indication: HYPERTENSION
     Route: 065
  5. VITAMIN D [Concomitant]
     Route: 065
  6. FERROUS GLUCONATE [Concomitant]
     Route: 065
  7. MILNACIPRAN [Suspect]
     Indication: FIBROMYALGIA
     Dosage: 12.5MG ONCE ON DAY 1 AND TWICE DAILY ON DAYS 2-3
     Route: 065
  8. MILNACIPRAN [Suspect]
     Indication: FIBROMYALGIA
     Dosage: ON DAYS 4-7
     Route: 065
  9. MILNACIPRAN [Suspect]
     Indication: FIBROMYALGIA
     Dosage: FROM DAY 8
     Route: 065
  10. FLUOXETINE [Suspect]
     Dosage: 40MG DAILY
     Route: 065
  11. DOXEPIN [Suspect]
     Route: 065
  12. TRAMADOL [Suspect]
     Route: 065
  13. ALPRAZOLAM [Concomitant]
     Indication: DEPRESSION
     Route: 065
  14. ZOLPIDEM [Concomitant]
     Indication: INSOMNIA
     Route: 065
  15. ZOLEDRONIC ACID [Concomitant]
     Indication: OSTEOPENIA
     Route: 065

REACTIONS (2)
  - Rash morbilliform [Recovered/Resolved]
  - Serotonin syndrome [Recovered/Resolved]
